FAERS Safety Report 9932072 (Version 1)
Quarter: 2014Q1

REPORT INFORMATION
  Report Type: Spontaneous
  Country: IT (occurrence: None)
  Receive Date: 20140226
  Receipt Date: 20140226
  Transmission Date: 20141002
  Serious: Yes (Other)
  Sender: FDA-Public Use
  Company Number: AUR-APL-2014-00576

PATIENT
  Age: 58 Year
  Sex: Male

DRUGS (2)
  1. LEVOFLOXACIN (LEVOFLOXACIN) [Suspect]
     Indication: BENIGN PROSTATIC HYPERPLASIA
     Dosage: (1 DOSAGE FORMS, 1D), ORAL
     Route: 048
     Dates: start: 20131008, end: 20131011
  2. OMNIC [Suspect]
     Indication: BENIGN PROSTATIC HYPERPLASIA
     Dosage: (1 DOSAGE FORMS, 1D), ORAL
     Route: 048
     Dates: start: 20131008, end: 20131011

REACTIONS (2)
  - Abdominal pain upper [None]
  - Nausea [None]
